FAERS Safety Report 19500922 (Version 1)
Quarter: 2021Q3

REPORT INFORMATION
  Report Type: Spontaneous
  Country: KR (occurrence: KR)
  Receive Date: 20210707
  Receipt Date: 20210707
  Transmission Date: 20211014
  Serious: Yes (Other)
  Sender: FDA-Public Use
  Company Number: KR-BRISTOL-MYERS SQUIBB COMPANY-BMS-2021-063544

PATIENT
  Sex: Female

DRUGS (1)
  1. BARACLUDE [Suspect]
     Active Substance: ENTECAVIR
     Indication: PRODUCT USED FOR UNKNOWN INDICATION
     Dosage: 0.5 MILLIGRAM 1 TABLET A DAY ON AN EMPTY STOMACH ABOUT 7?8 YEARS
     Route: 065
     Dates: start: 2013

REACTIONS (3)
  - Cystitis [Unknown]
  - Nephritis [Unknown]
  - Nephropathy [Unknown]
